FAERS Safety Report 5527597-2 (Version None)
Quarter: 2007Q4

REPORT INFORMATION
  Report Type: 
  Country: None (occurrence: None)
  Receive Date: 20071121
  Receipt Date: 20071114
  Transmission Date: 20080405
  Serious: Yes (Hospitalization)
  Sender: FDA-Public Use
  Company Number: ABX37-07-0981

PATIENT
  Age: 50 Year
  Sex: Female
  Weight: 71.6683 kg

DRUGS (7)
  1. ABRAXANE [Suspect]
     Indication: BREAST CANCER
     Dosage: 175 MG/DATE OF LAST DOSE 22OCT07/C3D8W2 (100 MG/M2,WEEKLY X 3 FOLLOWED BY 1 WEEK REST X 6 C), IV
     Route: 042
     Dates: start: 20071015
  2. CARBOPLATIN [Suspect]
     Indication: BREAST CANCER
     Dosage: 804 MG/PATE OF LAST DOSE 150CTO7/C3D8W1 (6 OTHER,DL Q 28 DAYS X 6 CYCLES),INTRAVENOUS
     Route: 042
     Dates: start: 20071015
  3. HERCEPTIN [Suspect]
     Indication: BREAST CANCER
     Dosage: 136 MG/DATE OF LAST DOSE 220CT07/C3D8W2 (4 MG/KG,WEEK X 22 WEEKS),INTRAVENOUS
     Route: 042
     Dates: start: 20071015
  4. AVASTIN [Suspect]
     Indication: BREAST CANCER
     Dosage: 340 MG/DATE OF LAST DOSE 220CT07/C3D8W2 (5 MG/KG,Q 7 DAYS X 23 WEEKS),INTRAVENOUS
     Route: 042
     Dates: start: 20071015
  5. PROTONIX [Concomitant]
  6. WELLBUTRIN [Concomitant]
  7. ASPIRIN [Concomitant]

REACTIONS (20)
  - ALPHA HAEMOLYTIC STREPTOCOCCAL INFECTION [None]
  - ATELECTASIS [None]
  - BLOOD CULTURE POSITIVE [None]
  - CHILLS [None]
  - DEEP VEIN THROMBOSIS [None]
  - DYSPNOEA [None]
  - ERYTHEMA [None]
  - FEELING ABNORMAL [None]
  - GROIN ABSCESS [None]
  - GROIN INFECTION [None]
  - HAEMOGLOBIN DECREASED [None]
  - INDURATION [None]
  - LOCAL SWELLING [None]
  - PURULENT DISCHARGE [None]
  - PYREXIA [None]
  - SEPSIS [None]
  - TENDERNESS [None]
  - THROMBOCYTOPENIA [None]
  - VULVAL DISORDER [None]
  - WHITE BLOOD CELL COUNT DECREASED [None]
